FAERS Safety Report 4410018-0 (Version None)
Quarter: 2004Q3

REPORT INFORMATION
  Report Type: 
  Country: None (occurrence: None)
  Receive Date: 20040726
  Receipt Date: 20040708
  Transmission Date: 20050211
  Serious: Yes (Hospitalization)
  Sender: FDA-Public Use
  Company Number: A-CH2004-06780

PATIENT
  Age: 44 Year
  Sex: Female

DRUGS (9)
  1. BOSENTAN [Suspect]
     Indication: PULMONARY HYPERTENSION
     Dosage: SEE IMAGE
     Route: 048
     Dates: start: 20021120, end: 20021127
  2. BOSENTAN [Suspect]
     Indication: PULMONARY HYPERTENSION
     Dosage: SEE IMAGE
     Route: 048
     Dates: start: 20021128, end: 20021218
  3. BOSENTAN [Suspect]
     Indication: PULMONARY HYPERTENSION
     Dosage: SEE IMAGE
     Route: 048
     Dates: start: 20021219, end: 20021219
  4. BOSENTAN [Suspect]
     Indication: PULMONARY HYPERTENSION
     Dosage: SEE IMAGE
     Route: 048
     Dates: start: 20021220, end: 20030218
  5. BOSENTAN [Suspect]
     Indication: PULMONARY HYPERTENSION
     Dosage: SEE IMAGE
     Route: 048
     Dates: start: 20030219
  6. WARFARIN SODIUM [Concomitant]
  7. METFORMIN HYDROCHLORIDE [Concomitant]
  8. BASEN (VOGLIBOSE) [Concomitant]
  9. FERROMIA (FERROUS CITRATE) [Concomitant]

REACTIONS (2)
  - NAUSEA [None]
  - VERTIGO POSITIONAL [None]
